FAERS Safety Report 14232325 (Version 1)
Quarter: 2017Q4

REPORT INFORMATION
  Report Type: Spontaneous
  Country: JP (occurrence: JP)
  Receive Date: 20171128
  Receipt Date: 20171128
  Transmission Date: 20180321
  Serious: Yes (Hospitalization, Other)
  Sender: FDA-Public Use
  Company Number: JP-MYLANLABS-2017M1073882

PATIENT
  Age: 47 Year
  Sex: Female
  Weight: 40 kg

DRUGS (5)
  1. CLARITHROMYCIN. [Suspect]
     Active Substance: CLARITHROMYCIN
     Indication: ATYPICAL MYCOBACTERIAL INFECTION
     Dosage: 800 MG, QD
     Route: 065
     Dates: start: 201404
  2. ETHAMBUTOL [Suspect]
     Active Substance: ETHAMBUTOL HYDROCHLORIDE
     Indication: ATYPICAL MYCOBACTERIAL INFECTION
     Dosage: 750 MG, QD
     Route: 065
     Dates: start: 201404, end: 201508
  3. KANAMYCIN [Suspect]
     Active Substance: KANAMYCIN\KANAMYCIN A SULFATE
     Indication: ATYPICAL MYCOBACTERIAL INFECTION
     Dosage: 750 MG, 2QW
     Route: 030
     Dates: start: 201509, end: 201603
  4. RIFAMPICIN [Suspect]
     Active Substance: RIFAMPIN
     Indication: ATYPICAL MYCOBACTERIAL INFECTION
     Dosage: 450 MG, QD
     Route: 065
     Dates: start: 201404
  5. LEVOFLOXACIN. [Suspect]
     Active Substance: LEVOFLOXACIN
     Indication: ATYPICAL MYCOBACTERIAL INFECTION
     Dosage: 500 MG, QD
     Route: 048
     Dates: start: 201508

REACTIONS (4)
  - Trichoglossia [Recovering/Resolving]
  - Superinfection [Recovering/Resolving]
  - Mycobacterium fortuitum infection [Recovering/Resolving]
  - Hepatic function abnormal [Recovering/Resolving]
